FAERS Safety Report 7724618-3 (Version None)
Quarter: 2011Q3

REPORT INFORMATION
  Report Type: 
  Country: None (occurrence: None)
  Receive Date: 20110901
  Receipt Date: 20110830
  Transmission Date: 20111222
  Serious: Yes (Death)
  Sender: FDA-Public Use
  Company Number: VE-PFIZER INC-2011193463

PATIENT
  Age: 72 Year
  Sex: Male

DRUGS (4)
  1. LIPITOR [Suspect]
     Dosage: 20 MG, 1X/DAY
     Route: 048
     Dates: start: 20090101, end: 20100101
  2. CORASPIRIN [Concomitant]
     Dosage: UNK
     Route: 048
     Dates: start: 20090101
  3. AMIODARONE HCL [Concomitant]
     Dosage: UNK
     Route: 048
     Dates: start: 20090101
  4. BENICAR [Concomitant]
     Dosage: UNK
     Route: 048
     Dates: start: 20090101

REACTIONS (1)
  - RESPIRATORY ARREST [None]
